FAERS Safety Report 9381280 (Version 2)
Quarter: 2013Q3

REPORT INFORMATION
  Report Type: Spontaneous
  Country: US (occurrence: US)
  Receive Date: 20130703
  Receipt Date: 20130830
  Transmission Date: 20140515
  Serious: No
  Sender: FDA-Public Use
  Company Number: US-PFIZER INC-2013194371

PATIENT
  Age: 46 Year
  Sex: Female
  Weight: 56.69 kg

DRUGS (5)
  1. LYRICA [Suspect]
     Indication: FIBROMYALGIA
     Dosage: 200 MG, 1X/DAY
     Route: 048
     Dates: start: 20130612, end: 20130615
  2. HYDROCODONE [Suspect]
     Indication: PAIN
     Dosage: 750 MG, AS NEEDED
  3. PRAVACHOL [Concomitant]
     Indication: BLOOD CHOLESTEROL INCREASED
     Dosage: 10 MG, 1X/DAY
     Dates: start: 201301
  4. FLEXERIL [Concomitant]
     Indication: PAIN
     Dosage: 10 MG, 1X/DAY
     Dates: start: 200701
  5. VICODIN [Concomitant]
     Indication: PAIN
     Dosage: 7.5 MG, 1X/DAY
     Dates: start: 201001

REACTIONS (3)
  - Drug ineffective [Unknown]
  - Drug intolerance [Unknown]
  - Vision blurred [Recovered/Resolved]
